FAERS Safety Report 9379488 (Version 1)
Quarter: 2013Q3

REPORT INFORMATION
  Report Type: Spontaneous
  Country: US (occurrence: US)
  Receive Date: 20130702
  Receipt Date: 20130702
  Transmission Date: 20140515
  Serious: No
  Sender: FDA-Public Use
  Company Number: US-BAYER-2013-079890

PATIENT
  Sex: 0

DRUGS (1)
  1. MAGNEVIST [Suspect]
     Indication: NUCLEAR MAGNETIC RESONANCE IMAGING BRAIN
     Dosage: 15 ML, ONCE, 15 ML VIAL
     Route: 042
     Dates: start: 201306, end: 201306

REACTIONS (2)
  - Vomiting [None]
  - Nausea [None]
